FAERS Safety Report 20199150 (Version 1)
Quarter: 2021Q4

REPORT INFORMATION
  Report Type: Spontaneous
  Country: US (occurrence: US)
  Receive Date: 20211217
  Receipt Date: 20211217
  Transmission Date: 20220303
  Serious: No
  Sender: FDA-Public Use
  Company Number: US-AMGEN-USASP2021197033

PATIENT
  Age: 47 Year
  Sex: Female

DRUGS (1)
  1. ENBREL [Suspect]
     Active Substance: ETANERCEPT
     Indication: Rheumatoid arthritis
     Dosage: 50 MILLIGRAM
     Route: 065
     Dates: start: 2021

REACTIONS (12)
  - Somnolence [Not Recovered/Not Resolved]
  - Sinus disorder [Unknown]
  - Chest pain [Unknown]
  - Mobility decreased [Unknown]
  - Migraine [Not Recovered/Not Resolved]
  - Dizziness [Unknown]
  - Epistaxis [Unknown]
  - Nasopharyngitis [Unknown]
  - Arthropod sting [Unknown]
  - Haematoma [Unknown]
  - Product storage error [Unknown]
  - Injection site reaction [Unknown]

NARRATIVE: CASE EVENT DATE: 20210101
